FAERS Safety Report 12297007 (Version 1)
Quarter: 2016Q2

REPORT INFORMATION
  Report Type: Spontaneous
  Country: US (occurrence: US)
  Receive Date: 20160422
  Receipt Date: 20160422
  Transmission Date: 20160815
  Serious: No
  Sender: FDA-Public Use
  Company Number: US-SA-2016SA053301

PATIENT
  Age: 30 Year
  Sex: Female

DRUGS (2)
  1. AFREZZA [Suspect]
     Active Substance: INSULIN HUMAN
     Route: 065
  2. INSULIN PUMP [Concomitant]
     Active Substance: INSULIN NOS

REACTIONS (4)
  - Throat irritation [Unknown]
  - Cough [Unknown]
  - Palpitations [Unknown]
  - Urticaria [Unknown]
